FAERS Safety Report 6093826-2 (Version None)
Quarter: 2009Q1

REPORT INFORMATION
  Report Type: 
  Country: None (occurrence: None)
  Receive Date: 20090226
  Receipt Date: 20090216
  Transmission Date: 20090719
  Serious: Yes (Other)
  Sender: FDA-Public Use
  Company Number: DE-PFIZER INC-2009173927

PATIENT

DRUGS (1)
  1. ATARAX [Suspect]
     Dosage: 30 DF, UNK
     Route: 048
     Dates: start: 20090216

REACTIONS (1)
  - SUICIDAL BEHAVIOUR [None]
